FAERS Safety Report 9280355 (Version 1)
Quarter: 2013Q1

REPORT INFORMATION
  Report Type: Spontaneous
  Country: US (occurrence: None)
  Receive Date: 20130211
  Receipt Date: 20130211
  Transmission Date: 20140127
  Serious: No
  Sender: FDA-Public Use
  Company Number: 2013-00044

PATIENT
  Age: 52 Year
  Sex: Female

DRUGS (3)
  1. ZICAM COLD REMEDY PLUS ORAL MIST [Suspect]
     Indication: NASOPHARYNGITIS
     Dosage: 3 SPRAYS
     Dates: start: 20130121, end: 20130123
  2. HYDROCHLOROTHIAZIDE [Concomitant]
  3. SERTRALINE [Concomitant]

REACTIONS (2)
  - Ageusia [None]
  - Anosmia [None]
